FAERS Safety Report 4845950-7 (Version None)
Quarter: 2005Q4

REPORT INFORMATION
  Report Type: 
  Country: None (occurrence: None)
  Receive Date: 20051129
  Receipt Date: 20050531
  Transmission Date: 20060501
  Serious: Yes (Hospitalization)
  Sender: FDA-Public Use
  Company Number: 2005BH000044

PATIENT
  Age: 82 Year
  Sex: Male

DRUGS (6)
  1. VENOGLOBULIN [Suspect]
     Indication: CHRONIC LYMPHOCYTIC LEUKAEMIA
  2. VENOGLOBULIN [Suspect]
     Indication: IDIOPATHIC THROMBOCYTOPENIC PURPURA
  3. PREDNISONE [Concomitant]
  4. METOPROLOL [Concomitant]
  5. IMATINIBMESYLATE [Concomitant]
  6. DOXAZOSIN [Concomitant]

REACTIONS (5)
  - CEREBRAL HAEMORRHAGE [None]
  - DILATATION ATRIAL [None]
  - ISCHAEMIC CARDIOMYOPATHY [None]
  - MYOCARDIAL INFARCTION [None]
  - THERAPY NON-RESPONDER [None]
